FAERS Safety Report 10060361 (Version 2)
Quarter: 2014Q2

REPORT INFORMATION
  Report Type: Spontaneous
  Country: US (occurrence: US)
  Receive Date: 20140404
  Receipt Date: 20140625
  Transmission Date: 20141212
  Serious: No
  Sender: FDA-Public Use
  Company Number: US-009507513-1403USA005914

PATIENT
  Sex: Female
  Weight: 94.79 kg

DRUGS (8)
  1. OXYTROL FOR WOMEN [Suspect]
     Indication: INCONTINENCE
     Dosage: 1 DF, Q4D
     Route: 062
     Dates: start: 201402, end: 20140620
  2. LIPITOR [Concomitant]
     Indication: BLOOD CHOLESTEROL
     Dosage: UNK, UNKNOWN
  3. LISINOPRIL [Concomitant]
     Indication: BLOOD PRESSURE
     Dosage: UNK, UNKNOWN
  4. LUMIGAN [Concomitant]
     Indication: GLAUCOMA
     Dosage: UNK, UNKNOWN
  5. LUMIGAN [Concomitant]
     Indication: MACULAR DEGENERATION
  6. OCUVITE PRESERVISION [Concomitant]
     Indication: GLAUCOMA
     Dosage: UNK, UNKNOWN
  7. OCUVITE PRESERVISION [Concomitant]
     Indication: MACULAR DEGENERATION
  8. IMIPRAMINE HYDROCHLORIDE [Concomitant]
     Indication: DEPRESSION
     Dosage: UNK, UNKNOWN

REACTIONS (3)
  - Drug effect decreased [Unknown]
  - Off label use [Unknown]
  - Product packaging issue [Unknown]
